FAERS Safety Report 7944434-7 (Version None)
Quarter: 2011Q4

REPORT INFORMATION
  Report Type: 
  Country: None (occurrence: None)
  Receive Date: 20111129
  Receipt Date: 20111122
  Transmission Date: 20120403
  Serious: Yes (Hospitalization)
  Sender: FDA-Public Use
  Company Number: US-BRISTOL-MYERS SQUIBB COMPANY-16242877

PATIENT
  Age: 69 Year
  Sex: Male
  Weight: 134 kg

DRUGS (7)
  1. DEXAMETHASONE [Concomitant]
     Indication: MULTIPLE MYELOMA
     Dosage: RESTARTED:17SEP2011,DOSE REDUCED:8MG PER WEEK,LAST DOSE:17SEP2011.
     Route: 048
     Dates: start: 20110726
  2. COUMADIN [Suspect]
     Route: 065
  3. METFORMIN HCL [Suspect]
     Route: 065
  4. HUMALOG [Suspect]
     Route: 065
  5. REVLIMID [Concomitant]
     Indication: MULTIPLE MYELOMA
     Dosage: RESTARTED:17SEP2011.LAST DOSE:26SEP2011.
     Route: 048
     Dates: start: 20110726
  6. LANTUS [Suspect]
     Route: 065
  7. ASPIRIN [Concomitant]
     Route: 048

REACTIONS (4)
  - HYPOKALAEMIA [None]
  - CARDIAC FAILURE [None]
  - INTERNATIONAL NORMALISED RATIO INCREASED [None]
  - HYPOGLYCAEMIA [None]
